FAERS Safety Report 23411324 (Version 1)
Quarter: 2024Q1

REPORT INFORMATION
  Report Type: Spontaneous
  Country: US (occurrence: US)
  Receive Date: 20240117
  Receipt Date: 20240117
  Transmission Date: 20240409
  Serious: No
  Sender: FDA-Public Use
  Company Number: US-SK LIFE SCIENCE, INC-SKPVG-2023-000455

PATIENT

DRUGS (4)
  1. XCOPRI [Suspect]
     Active Substance: CENOBAMATE
     Indication: Seizure
     Dosage: 25 MILLIGRAM
     Route: 048
     Dates: start: 202303
  2. XCOPRI [Suspect]
     Active Substance: CENOBAMATE
     Dosage: 12.5 MILLIGRAM, ONCE A DAY AT NIGHT
     Route: 048
     Dates: end: 202304
  3. LAMICTAL [Concomitant]
     Active Substance: LAMOTRIGINE
     Indication: Product used for unknown indication
     Dosage: 200 MILLIGRAM, TWICE A DAY
     Route: 065
  4. VIMPAT [Concomitant]
     Active Substance: LACOSAMIDE
     Indication: Product used for unknown indication
     Dosage: 200 MILLIGRAM, TWICE A DAY
     Route: 065

REACTIONS (15)
  - Seizure [Not Recovered/Not Resolved]
  - Frustration tolerance decreased [Not Recovered/Not Resolved]
  - Product dose omission issue [Not Recovered/Not Resolved]
  - Thirst [Unknown]
  - Dysphemia [Unknown]
  - General physical health deterioration [Unknown]
  - Crying [Unknown]
  - Screaming [Unknown]
  - Eye disorder [Unknown]
  - Drug titration error [Unknown]
  - Feeling abnormal [Unknown]
  - Fear [Unknown]
  - Lacrimation decreased [Unknown]
  - Dry mouth [Unknown]
  - Gait inability [Unknown]
